FAERS Safety Report 15369967 (Version 1)
Quarter: 2018Q3

REPORT INFORMATION
  Report Type: Spontaneous
  Country: US (occurrence: US)
  Receive Date: 20180911
  Receipt Date: 20180911
  Transmission Date: 20181010
  Serious: Yes (Hospitalization, Other)
  Sender: FDA-Public Use
  Company Number: US-ELI_LILLY_AND_COMPANY-US201809000946

PATIENT
  Sex: Female

DRUGS (2)
  1. TOUJEO [Concomitant]
     Active Substance: INSULIN GLARGINE
     Indication: TYPE 1 DIABETES MELLITUS
  2. HUMALOG [Suspect]
     Active Substance: INSULIN LISPRO
     Indication: TYPE 1 DIABETES MELLITUS
     Dosage: UNK, PRN AS NEEDED
     Route: 058

REACTIONS (5)
  - Blood glucose increased [Recovered/Resolved]
  - Stress [Recovered/Resolved]
  - Dementia [Not Recovered/Not Resolved]
  - Panic attack [Recovered/Resolved]
  - Wrist fracture [Recovering/Resolving]
